FAERS Safety Report 6144753-3 (Version None)
Quarter: 2009Q2

REPORT INFORMATION
  Report Type: 
  Country: None (occurrence: None)
  Receive Date: 20090401
  Receipt Date: 20090401
  Transmission Date: 20091009
  Serious: Yes (Hospitalization)
  Sender: FDA-Public Use
  Company Number: None

PATIENT
  Age: 50 Year
  Sex: Female
  Weight: 70.3075 kg

DRUGS (1)
  1. LORAZEPAM [Suspect]
     Indication: ANXIETY
     Dosage: .25MG Q 4-6 HRS PO
     Route: 048
     Dates: start: 20051015, end: 20090120

REACTIONS (8)
  - AGITATION [None]
  - DRUG DEPENDENCE [None]
  - DRUG WITHDRAWAL SYNDROME [None]
  - EMOTIONAL DISORDER [None]
  - HEARING IMPAIRED [None]
  - HYPOAESTHESIA [None]
  - INSOMNIA [None]
  - VISUAL IMPAIRMENT [None]
